FAERS Safety Report 7637491-9 (Version None)
Quarter: 2011Q3

REPORT INFORMATION
  Report Type: 
  Country: None (occurrence: None)
  Receive Date: 20110726
  Receipt Date: 20110715
  Transmission Date: 20111222
  Serious: Yes (Death, Hospitalization)
  Sender: FDA-Public Use
  Company Number: PHHY2011US15676

PATIENT
  Sex: Male

DRUGS (1)
  1. TASIGNA [Suspect]
     Indication: CHRONIC MYELOID LEUKAEMIA
     Dosage: 300 MG, BID
     Route: 048
     Dates: start: 20101108

REACTIONS (5)
  - DEATH [None]
  - HOT FLUSH [None]
  - CARBON DIOXIDE INCREASED [None]
  - DYSPNOEA [None]
  - OEDEMA PERIPHERAL [None]
